FAERS Safety Report 5756171-8 (Version None)
Quarter: 2008Q2

REPORT INFORMATION
  Report Type: 
  Country: None (occurrence: None)
  Receive Date: 20080602
  Receipt Date: 20080526
  Transmission Date: 20081010
  Serious: Yes (Other)
  Sender: FDA-Public Use
  Company Number: JP-PFIZER INC-2008045367

PATIENT
  Age: 74 Year
  Sex: Female

DRUGS (1)
  1. XALATAN [Suspect]
     Indication: GLAUCOMA
     Route: 031
     Dates: start: 20080101, end: 20080401

REACTIONS (3)
  - CORNEAL DISORDER [None]
  - HERPES OPHTHALMIC [None]
  - HERPES SIMPLEX OPHTHALMIC [None]
